FAERS Safety Report 4308406-6 (Version None)
Quarter: 2004Q1

REPORT INFORMATION
  Report Type: 
  Country: None (occurrence: None)
  Receive Date: 20040301
  Receipt Date: 20030411
  Transmission Date: 20041129
  Serious: Yes (Hospitalization)
  Sender: FDA-Public Use
  Company Number: WAES 0304USA01397

PATIENT
  Age: 54 Year
  Sex: Male
  Weight: 114 kg

DRUGS (6)
  1. [THERAPY UNSPECIFIED] [Concomitant]
     Dates: start: 19810101
  2. CAPTOPRIL [Concomitant]
  3. KLONOPIN [Concomitant]
  4. LASIX [Concomitant]
     Dates: start: 19840701
  5. POTASSIUM (UNSPECIFIED) [Concomitant]
  6. VIOXX [Suspect]
     Indication: ARTHRITIS
     Route: 048
     Dates: start: 20010525, end: 20010608

REACTIONS (21)
  - AORTIC VALVE INCOMPETENCE [None]
  - BACK PAIN [None]
  - BRAIN SCAN ABNORMAL [None]
  - CARDIAC FAILURE CONGESTIVE [None]
  - CEREBRAL INFARCTION [None]
  - CHEST X-RAY ABNORMAL [None]
  - DEEP VEIN THROMBOSIS [None]
  - DYSPEPSIA [None]
  - DYSPNOEA [None]
  - HEADACHE [None]
  - HYPERSENSITIVITY [None]
  - ILEUS PARALYTIC [None]
  - INJURY [None]
  - LOWER LIMB FRACTURE [None]
  - OEDEMA PERIPHERAL [None]
  - OPEN WOUND [None]
  - PRURITUS [None]
  - RASH [None]
  - STEVENS-JOHNSON SYNDROME [None]
  - VENTRICULAR HYPERTROPHY [None]
  - WEIGHT INCREASED [None]
